FAERS Safety Report 22343369 (Version 2)
Quarter: 2023Q2

REPORT INFORMATION
  Report Type: Spontaneous
  Country: CN (occurrence: CN)
  Receive Date: 20230519
  Receipt Date: 20230605
  Transmission Date: 20230722
  Serious: Yes (Hospitalization)
  Sender: FDA-Public Use
  Company Number: CN-NOVOPROD-1063207

PATIENT
  Age: 77 Year
  Sex: Male
  Weight: 57 kg

DRUGS (6)
  1. NOVORAPID [Suspect]
     Active Substance: INSULIN ASPART
     Indication: Type 2 diabetes mellitus
     Dosage: 10 IU
  2. INSULIN GLARGINE [Concomitant]
     Active Substance: INSULIN GLARGINE
     Indication: Type 2 diabetes mellitus
     Dosage: 9 IU, QD(AT NOON)
  3. ACARBOSE [Concomitant]
     Active Substance: ACARBOSE
     Dosage: 2 TABLETS AT NOON
     Route: 048
  4. ACARBOSE [Concomitant]
     Active Substance: ACARBOSE
     Indication: Type 2 diabetes mellitus
     Dosage: 1 DF, TID(1 TABLET)
     Route: 048
  5. ACARBOSE [Concomitant]
     Active Substance: ACARBOSE
     Dosage: TWO TABLETS AT NOON AND 1 TABLET BID
     Route: 048
  6. LINAGLIPTIN [Concomitant]
     Active Substance: LINAGLIPTIN
     Indication: Type 2 diabetes mellitus
     Dosage: 1 DF, QD(1 TABLET)

REACTIONS (2)
  - Hypoglycaemic coma [Recovered/Resolved]
  - Blood glucose increased [Unknown]

NARRATIVE: CASE EVENT DATE: 20230424
